FAERS Safety Report 10340477 (Version 2)
Quarter: 2014Q3

REPORT INFORMATION
  Report Type: Spontaneous
  Country: US (occurrence: US)
  Receive Date: 20140724
  Receipt Date: 20140724
  Transmission Date: 20150326
  Serious: Yes (Hospitalization, Other)
  Sender: FDA-Public Use
  Company Number: US-009507513-2011SP005792

PATIENT
  Sex: Female
  Weight: 68.4 kg

DRUGS (1)
  1. NUVARING [Suspect]
     Active Substance: ETHINYL ESTRADIOL\ETONOGESTREL
     Indication: CONTRACEPTION
     Dosage: 1 DF, QM
     Route: 067
     Dates: start: 2004, end: 20070802

REACTIONS (23)
  - Ovarian cyst [Unknown]
  - Lower respiratory tract infection [Unknown]
  - Nausea [Not Recovered/Not Resolved]
  - Upper-airway cough syndrome [Not Recovered/Not Resolved]
  - Migraine [Recovering/Resolving]
  - Exposure to communicable disease [Unknown]
  - Embolism arterial [Unknown]
  - Hypercoagulation [Unknown]
  - Rash [Unknown]
  - Papilloma viral infection [Unknown]
  - Vaginitis bacterial [Unknown]
  - Headache [Recovering/Resolving]
  - Acarodermatitis [Unknown]
  - Vomiting [Not Recovered/Not Resolved]
  - Herpes simplex [Unknown]
  - Hysterectomy [Unknown]
  - Hemiparesis [Recovering/Resolving]
  - Chronic sinusitis [Unknown]
  - Cervix carcinoma [Unknown]
  - Sinus operation [Unknown]
  - Syncope [Recovered/Resolved]
  - Hypoaesthesia [Recovering/Resolving]
  - Drug hypersensitivity [Unknown]

NARRATIVE: CASE EVENT DATE: 2004
